FAERS Safety Report 9752242 (Version 2)
Quarter: 2013Q4

REPORT INFORMATION
  Report Type: Spontaneous
  Country: IT (occurrence: None)
  Receive Date: 20131211
  Receipt Date: 20131213
  Transmission Date: 20140711
  Serious: Yes (Hospitalization)
  Sender: FDA-Public Use
  Company Number: 2013AP010167

PATIENT
  Age: 35 Year
  Sex: Male

DRUGS (8)
  1. CLARITHROMYCIN [Suspect]
     Indication: PHARYNGITIS
     Route: 048
     Dates: start: 20131013, end: 20131018
  2. PROGRAF [Suspect]
     Indication: PROPHYLAXIS AGAINST TRANSPLANT REJECTION
     Route: 048
     Dates: start: 20070101, end: 20131018
  3. MYCOPHENOLATE MOFETIL (MYCOPHENOLATE MOFETIL) [Concomitant]
  4. CARDIOASPIRIN (ACETYLSALICYLIC ACID) [Concomitant]
  5. LOBIVON (NEBIVOLOL HYDROCHLORIDE) [Concomitant]
  6. MAG 2 /00799801/ (MAGNESIUM PIDOLATE) [Concomitant]
  7. DELTACORTENE (PREDNISONE) [Concomitant]
  8. OMEPRAZOLE (OMEPRAZOLE) [Concomitant]

REACTIONS (3)
  - Renal failure acute [None]
  - Pharyngitis [None]
  - Blood potassium increased [None]
